FAERS Safety Report 12687006 (Version 3)
Quarter: 2016Q4

REPORT INFORMATION
  Report Type: Spontaneous
  Country: CH (occurrence: CH)
  Receive Date: 20160826
  Receipt Date: 20161012
  Transmission Date: 20170207
  Serious: Yes (Life-Threatening, Hospitalization, Other)
  Sender: FDA-Public Use
  Company Number: CH-BRISTOL-MYERS SQUIBB COMPANY-BMS-2016-069968

PATIENT
  Age: 55 Year
  Sex: Female

DRUGS (7)
  1. ABILIFY [Suspect]
     Active Substance: ARIPIPRAZOLE
     Dosage: 5 MG, QD
     Route: 048
     Dates: start: 20160721, end: 20160801
  2. ABILIFY [Suspect]
     Active Substance: ARIPIPRAZOLE
     Indication: AGGRESSION
     Dosage: 15 MG, QD
     Route: 048
     Dates: start: 20160708, end: 20160720
  3. QUETIAPINE ACTAVIS [Concomitant]
     Active Substance: QUETIAPINE
     Indication: PRODUCT USED FOR UNKNOWN INDICATION
     Dosage: 300 MG, BID
     Route: 048
     Dates: start: 20160715
  4. AMLODIPIN                          /00972401/ [Concomitant]
     Active Substance: AMLODIPINE BESYLATE
     Indication: PRODUCT USED FOR UNKNOWN INDICATION
     Dosage: 5 MG, QD
     Route: 048
  5. ABILIFY MAINTENA [Suspect]
     Active Substance: ARIPIPRAZOLE
     Indication: AGGRESSION
     Dosage: 400 MG, QMO
     Route: 030
     Dates: start: 20160719
  6. TEMESTA                            /00273201/ [Concomitant]
     Active Substance: LORAZEPAM
     Indication: PRODUCT USED FOR UNKNOWN INDICATION
     Dosage: 1 MG, TID
     Route: 048
  7. ESCITALOPRAM [Concomitant]
     Active Substance: ESCITALOPRAM OXALATE
     Indication: PRODUCT USED FOR UNKNOWN INDICATION
     Dosage: 5 MG, QD
     Route: 048
     Dates: start: 20160729, end: 20160801

REACTIONS (8)
  - Blood creatine phosphokinase increased [Recovered/Resolved]
  - Tremor [Recovering/Resolving]
  - Dysphagia [Recovering/Resolving]
  - Product use issue [Unknown]
  - Neuroleptic malignant syndrome [Recovering/Resolving]
  - Confusional state [Unknown]
  - Muscle rigidity [Recovering/Resolving]
  - Mutism [Recovering/Resolving]

NARRATIVE: CASE EVENT DATE: 20160719
